FAERS Safety Report 22905606 (Version 5)
Quarter: 2023Q4

REPORT INFORMATION
  Report Type: Spontaneous
  Country: JP (occurrence: None)
  Receive Date: 20230905
  Receipt Date: 20231207
  Transmission Date: 20240109
  Serious: Yes (Other)
  Sender: FDA-Public Use
  Company Number: 2023A199314

PATIENT
  Age: 43 Year
  Sex: Male
  Weight: 65 kg

DRUGS (14)
  1. TEZSPIRE [Suspect]
     Active Substance: TEZEPELUMAB-EKKO
     Indication: Asthma
     Route: 058
     Dates: start: 20230619, end: 20230718
  2. MONTELUKAST [Concomitant]
     Active Substance: MONTELUKAST SODIUM
     Indication: Asthma
     Route: 048
  3. EPINASTINE HYDROCHLORIDE [Concomitant]
     Active Substance: EPINASTINE HYDROCHLORIDE
     Indication: Asthma
     Route: 048
     Dates: start: 202209
  4. BONALON [Concomitant]
     Active Substance: ALENDRONATE SODIUM
     Indication: Asthma
     Route: 048
     Dates: start: 202301
  5. SULFAMETHOXAZOLE\TRIMETHOPRIM [Concomitant]
     Active Substance: SULFAMETHOXAZOLE\TRIMETHOPRIM
     Indication: Asthma
     Route: 048
     Dates: start: 202211
  6. ERYTHROCIN [Concomitant]
     Active Substance: ERYTHROMYCIN LACTOBIONATE
     Indication: Asthma
     Route: 048
     Dates: start: 202302
  7. PREDONINE [Concomitant]
     Active Substance: PREDNISOLONE
     Indication: Asthma
     Route: 048
     Dates: start: 202209
  8. PREDONINE [Concomitant]
     Active Substance: PREDNISOLONE
     Indication: Asthma
     Route: 048
     Dates: start: 20230619, end: 20230621
  9. VONOPRAZAN FUMARATE [Concomitant]
     Active Substance: VONOPRAZAN FUMARATE
     Indication: Asthma
     Route: 048
  10. TELMISARTAN [Concomitant]
     Active Substance: TELMISARTAN
     Indication: Asthma
     Route: 048
  11. CARBOCYSTEINE [Concomitant]
     Active Substance: CARBOCYSTEINE
     Indication: Asthma
     Route: 048
  12. FLUTICASONE PROPIONATE\FORMOTEROL FUMARATE [Concomitant]
     Active Substance: FLUTICASONE PROPIONATE\FORMOTEROL FUMARATE
     Indication: Asthma
     Route: 055
     Dates: end: 2023
  13. SPIRIVA [Concomitant]
     Active Substance: TIOTROPIUM BROMIDE MONOHYDRATE
     Indication: Asthma
     Route: 055
  14. ALVESCO [Concomitant]
     Active Substance: CICLESONIDE
     Indication: Asthma
     Route: 055
     Dates: start: 202302

REACTIONS (2)
  - Supraventricular extrasystoles [Recovering/Resolving]
  - Atrial fibrillation [Recovered/Resolved]

NARRATIVE: CASE EVENT DATE: 20230726
